FAERS Safety Report 8364994-4 (Version None)
Quarter: 2012Q2

REPORT INFORMATION
  Report Type: 
  Country: None (occurrence: None)
  Receive Date: 20120516
  Receipt Date: 20120508
  Transmission Date: 20120825
  Serious: Yes (Life-Threatening, Disabling, Other)
  Sender: FDA-Public Use
  Company Number: US-VIIV HEALTHCARE LIMITED-A0976809A

PATIENT
  Age: 36 Year
  Sex: Female

DRUGS (1)
  1. COMBIVIR [Suspect]
     Indication: ANTIVIRAL PROPHYLAXIS
     Dosage: 1TAB TWICE PER DAY
     Route: 048
     Dates: start: 20111005

REACTIONS (10)
  - SUICIDAL IDEATION [None]
  - NIGHT SWEATS [None]
  - ALOPECIA [None]
  - LABORATORY TEST [None]
  - HYPOTHYROIDISM [None]
  - WEIGHT INCREASED [None]
  - MENSTRUATION IRREGULAR [None]
  - CONSTIPATION [None]
  - IRRITABILITY [None]
  - MOOD SWINGS [None]
